FAERS Safety Report 9500724 (Version 1)
Quarter: 2013Q1

REPORT INFORMATION
  Report Type: Spontaneous
  Country: US (occurrence: None)
  Receive Date: 20130118
  Receipt Date: 20130118
  Transmission Date: 20140127
  Serious: No
  Sender: FDA-Public Use
  Company Number: A-NJ2012-60649

PATIENT
  Age: 21 Year
  Sex: Female
  Weight: 43.3 kg

DRUGS (6)
  1. TRACLEER [Suspect]
     Indication: PULMONARY ARTERIAL HYPERTENSION
     Route: 048
  2. ADCIRCA (TADALAFIL) [Concomitant]
  3. TYVASO (TREPROSTINIL SODIUM) [Concomitant]
  4. COUMADIN (WARFARIN SODIUM) [Concomitant]
  5. PULMOZYME (DORNASE ALFA) [Concomitant]
  6. OXYGEN (OXYGEN) [Concomitant]

REACTIONS (9)
  - Pulmonary arterial hypertension [None]
  - Cardiac failure [None]
  - General physical health deterioration [None]
  - Condition aggravated [None]
  - Dyspnoea [None]
  - Oxygen saturation decreased [None]
  - Fatigue [None]
  - Pulmonary function test decreased [None]
  - Fluid retention [None]
